FAERS Safety Report 7589326-0 (Version None)
Quarter: 2011Q3

REPORT INFORMATION
  Report Type: 
  Country: None (occurrence: None)
  Receive Date: 20110705
  Receipt Date: 20110623
  Transmission Date: 20111222
  Serious: Yes (Hospitalization, Other)
  Sender: FDA-Public Use
  Company Number: TR-ROCHE-577344

PATIENT
  Age: 9 Year
  Sex: Female
  Weight: 22 kg

DRUGS (6)
  1. ACETAMINOPHEN [Concomitant]
     Dates: start: 20060105, end: 20060108
  2. VANCOMYCIN [Concomitant]
     Dates: start: 20060108, end: 20060123
  3. IMIPENEM [Concomitant]
     Dates: start: 20060108, end: 20060123
  4. OSELTAMIVIR [Suspect]
     Route: 065
     Dates: start: 20060103, end: 20060123
  5. CLARITHROMYCIN [Concomitant]
     Dates: start: 20060103, end: 20060123
  6. AMPICILLIN AND SULBACTAM [Concomitant]
     Dates: start: 20060103, end: 20060108

REACTIONS (3)
  - THROMBOCYTOSIS [None]
  - LEUKOPENIA [None]
  - LYMPHOPENIA [None]
